FAERS Safety Report 6261987-8 (Version None)
Quarter: 2009Q3

REPORT INFORMATION
  Report Type: 
  Country: None (occurrence: None)
  Receive Date: 20090707
  Receipt Date: 20090707
  Transmission Date: 20100115
  Serious: Yes (Other)
  Sender: FDA-Public Use
  Company Number: None

PATIENT
  Sex: Female
  Weight: 61.2356 kg

DRUGS (2)
  1. IMPLANON [Suspect]
     Indication: CONTRACEPTION
     Dosage: 68 MG ON ARM
     Dates: start: 20081016, end: 20090703
  2. IMPLANON [Suspect]
     Indication: UTERINE CYST
     Dosage: 68 MG ON ARM
     Dates: start: 20081016, end: 20090703

REACTIONS (4)
  - ECONOMIC PROBLEM [None]
  - LOSS OF EMPLOYMENT [None]
  - MENORRHAGIA [None]
  - UNEVALUABLE EVENT [None]
